FAERS Safety Report 8083577-7 (Version None)
Quarter: 2012Q1

REPORT INFORMATION
  Report Type: 
  Country: None (occurrence: None)
  Receive Date: 20120127
  Receipt Date: 20110126
  Transmission Date: 20120608
  Serious: No
  Sender: FDA-Public Use
  Company Number: US-ABBOTT-11P-163-0700967-00

PATIENT
  Age: 25 Year
  Sex: Female

DRUGS (2)
  1. ACETAMINOPHEN [Concomitant]
     Indication: PRODUCT USED FOR UNKNOWN INDICATION
  2. HUMIRA [Suspect]
     Indication: CROHN'S DISEASE
     Dates: start: 20100701, end: 20110124

REACTIONS (4)
  - JOINT SWELLING [None]
  - FEELING COLD [None]
  - C-REACTIVE PROTEIN ABNORMAL [None]
  - ARTHRALGIA [None]
